FAERS Safety Report 23987963 (Version 1)
Quarter: 2024Q2

REPORT INFORMATION
  Report Type: Spontaneous
  Country: PH (occurrence: PH)
  Receive Date: 20240619
  Receipt Date: 20240619
  Transmission Date: 20240716
  Serious: Yes (Other)
  Sender: FDA-Public Use
  Company Number: PH-SKF-000132

PATIENT
  Age: 23 Year
  Sex: Male

DRUGS (9)
  1. PREGABALIN [Suspect]
     Active Substance: PREGABALIN
     Indication: Neuropathy peripheral
     Route: 048
  2. TRAMADOL [Suspect]
     Active Substance: TRAMADOL\TRAMADOL HYDROCHLORIDE
     Indication: Neuropathy peripheral
     Route: 041
  3. CELECOXIB [Suspect]
     Active Substance: CELECOXIB
     Indication: Phantom limb syndrome
     Route: 065
  4. ACETAMINOPHEN [Suspect]
     Active Substance: ACETAMINOPHEN
     Indication: Phantom limb syndrome
     Route: 048
  5. FENTANYL CITRATE [Suspect]
     Active Substance: FENTANYL CITRATE
     Indication: Phantom limb syndrome
     Route: 065
  6. CODEINE [Suspect]
     Active Substance: CODEINE
     Indication: Phantom limb syndrome
     Route: 048
  7. MORPHINE [Suspect]
     Active Substance: MORPHINE
     Indication: Phantom limb syndrome
     Dosage: AS NEEDED DOSE
     Route: 042
  8. KETAMINE [Suspect]
     Active Substance: KETAMINE
     Indication: Phantom limb syndrome
     Route: 042
  9. LIDOCAINE [Suspect]
     Active Substance: LIDOCAINE
     Indication: Phantom limb syndrome
     Route: 042

REACTIONS (5)
  - Inadequate analgesia [Recovered/Resolved]
  - Phantom limb syndrome [Recovered/Resolved]
  - Condition aggravated [Recovered/Resolved]
  - Drug ineffective [Unknown]
  - Treatment failure [Unknown]
